FAERS Safety Report 7225992-7 (Version None)
Quarter: 2011Q1

REPORT INFORMATION
  Report Type: 
  Country: None (occurrence: None)
  Receive Date: 20110113
  Receipt Date: 20110104
  Transmission Date: 20110831
  Serious: Yes (Hospitalization)
  Sender: FDA-Public Use
  Company Number: US-ABBOTT-10P-163-0690927-00

PATIENT
  Sex: Male
  Weight: 124.85 kg

DRUGS (8)
  1. ANSAID [Concomitant]
     Indication: JOINT STIFFNESS
     Dates: start: 19890101
  2. METHOTREXATE [Concomitant]
     Indication: PSORIASIS
     Route: 030
     Dates: start: 20070111
  3. HUMIRA [Suspect]
     Indication: PSORIASIS
     Route: 058
     Dates: start: 20091020, end: 20091020
  4. HUMIRA [Suspect]
     Route: 058
     Dates: end: 20101202
  5. ANSAID [Concomitant]
     Indication: PAIN
  6. CORTICOSTEROIDS, DERMATOLOGICAL PREPARATIONS [Concomitant]
     Indication: PSORIASIS
     Dates: start: 19710101
  7. COMMERCIAL HUMIRA [Concomitant]
     Indication: PSORIASIS
     Dates: start: 20070901
  8. TENORMIN [Concomitant]
     Indication: HYPERTENSION
     Dates: start: 19890101

REACTIONS (1)
  - PANCYTOPENIA [None]
